FAERS Safety Report 4945749-7 (Version None)
Quarter: 2006Q1

REPORT INFORMATION
  Report Type: 
  Country: None (occurrence: None)
  Receive Date: 20060117
  Receipt Date: 20050321
  Transmission Date: 20060701
  Serious: Yes (Other)
  Sender: FDA-Public Use
  Company Number: A03200500794

PATIENT
  Age: 78 Year
  Sex: Male
  Weight: 74.83 kg

DRUGS (5)
  1. PLAVIX [Suspect]
     Indication: ANGIOPLASTY
     Dosage: 75 MG QD - ORAL
     Route: 048
     Dates: start: 20040501
  2. LOSARTAN POTASSIUM [Concomitant]
  3. SIMVASTATIN [Concomitant]
  4. ATENOLOL [Concomitant]
  5. ACETYLSALICYLIC ACID SRT [Concomitant]

REACTIONS (2)
  - ARTERIAL OCCLUSIVE DISEASE [None]
  - DRUG INEFFECTIVE [None]
